FAERS Safety Report 10388583 (Version 1)
Quarter: 2014Q3

REPORT INFORMATION
  Report Type: Spontaneous
  Country: US (occurrence: US)
  Receive Date: 20140815
  Receipt Date: 20140815
  Transmission Date: 20150326
  Serious: Yes (Hospitalization, Other)
  Sender: FDA-Public Use
  Company Number: US-009507513-1408USA001176

PATIENT
  Sex: Female
  Weight: 95.69 kg

DRUGS (1)
  1. NUVARING [Suspect]
     Active Substance: ETHINYL ESTRADIOL\ETONOGESTREL
     Indication: CONTRACEPTION
     Dosage: UNK; INSERT VAGINALLY AS NEEDED FOR 21 DAYS
     Route: 067
     Dates: start: 20130505

REACTIONS (24)
  - Periorbital haematoma [Unknown]
  - Transient ischaemic attack [Unknown]
  - Respiratory failure [Recovered/Resolved]
  - Abdominal operation [Unknown]
  - Depression [Unknown]
  - Oedema peripheral [Unknown]
  - Amenorrhoea [Unknown]
  - Enterobacter test positive [Unknown]
  - Posterior fossa decompression [Unknown]
  - Thrombosis in device [Recovering/Resolving]
  - Ischaemic stroke [Not Recovered/Not Resolved]
  - Brain stem infarction [Not Recovered/Not Resolved]
  - Gastrointestinal infection [Unknown]
  - Atelectasis [Unknown]
  - Intra-abdominal haematoma [Unknown]
  - Gastrostomy [Unknown]
  - Basilar artery thrombosis [Unknown]
  - Urinary tract infection enterococcal [Unknown]
  - Pulmonary oedema [Unknown]
  - Urinary incontinence [Unknown]
  - Thrombectomy [Unknown]
  - Atrial septal defect [Unknown]
  - Device deployment issue [Unknown]
  - Transaminases increased [Unknown]

NARRATIVE: CASE EVENT DATE: 201307
